FAERS Safety Report 22724405 (Version 2)
Quarter: 2023Q4

REPORT INFORMATION
  Report Type: Spontaneous
  Country: US (occurrence: US)
  Receive Date: 20230719
  Receipt Date: 20231214
  Transmission Date: 20240110
  Serious: No
  Sender: FDA-Public Use
  Company Number: US-REATA PHARMACEUTICALS INC.-2023USRTAOMA000004

PATIENT

DRUGS (4)
  1. SKYCLARYS [Suspect]
     Active Substance: OMAVELOXOLONE
     Indication: Friedreich^s ataxia
     Dosage: 150 MILLIGRAM, QD
     Route: 048
  2. SKYCLARYS [Suspect]
     Active Substance: OMAVELOXOLONE
     Dosage: 50 MILLIGRAM, QD (1 CAPSULE)
     Route: 048
  3. SKYCLARYS [Suspect]
     Active Substance: OMAVELOXOLONE
     Dosage: 100 MILLIGRAM, QD (2 CAPSULES)
     Route: 048
     Dates: start: 20230704
  4. FUROSEMIDE [Concomitant]
     Active Substance: FUROSEMIDE
     Indication: Product used for unknown indication
     Dosage: UNK

REACTIONS (5)
  - Constipation [Unknown]
  - Pollakiuria [Unknown]
  - Hepatic enzyme abnormal [Unknown]
  - Diarrhoea [Unknown]
  - Incorrect dose administered [Unknown]

NARRATIVE: CASE EVENT DATE: 20230701
